FAERS Safety Report 7570053-0 (Version None)
Quarter: 2011Q2

REPORT INFORMATION
  Report Type: 
  Country: None (occurrence: None)
  Receive Date: 20110624
  Receipt Date: 20110606
  Transmission Date: 20111010
  Serious: No
  Sender: FDA-Public Use
  Company Number: US-B.I. PHARMACEUTICALS,INC./RIDGEFIELD-2011-BP-14814BP

PATIENT
  Sex: Female

DRUGS (5)
  1. XANAX [Concomitant]
     Indication: SLEEP DISORDER
  2. LASIX [Concomitant]
     Indication: SWELLING
  3. VITAMIN B-12 [Concomitant]
     Indication: ANAEMIA
  4. LASIX [Concomitant]
     Indication: HYPERTENSION
  5. COMBIVENT [Suspect]
     Indication: CHRONIC OBSTRUCTIVE PULMONARY DISEASE
     Dosage: 16 PUF
     Route: 055
     Dates: start: 20010101

REACTIONS (2)
  - EAR CONGESTION [None]
  - SINUSITIS [None]
